FAERS Safety Report 26162594 (Version 2)
Quarter: 2025Q4

REPORT INFORMATION
  Report Type: Spontaneous
  Country: US (occurrence: US)
  Receive Date: 20251216
  Receipt Date: 20251225
  Transmission Date: 20260118
  Serious: No
  Sender: AMGEN
  Company Number: US-AMGEN-USASP2025245937

PATIENT
  Age: 24 Year
  Sex: Female

DRUGS (4)
  1. OTEZLA [Suspect]
     Active Substance: APREMILAST
     Indication: Psoriasis
     Dosage: 30 MILLIGRAM, BID
     Route: 048
     Dates: start: 20251111, end: 2025
  2. CLOBETASOL [Concomitant]
     Active Substance: CLOBETASOL
     Dosage: 118 MILLIGRAM/0.05% CREAM 45GM/0.05% SOL 25ML
  3. TRETINOIN [Concomitant]
     Active Substance: TRETINOIN
     Dosage: GEL PUMP 50GM
  4. VITAMIN D [Concomitant]
     Active Substance: VITAMIN D NOS
     Dosage: 400 LU

REACTIONS (1)
  - Vomiting [Recovered/Resolved]

NARRATIVE: CASE EVENT DATE: 20251101
